FAERS Safety Report 8231911-7 (Version None)
Quarter: 2012Q1

REPORT INFORMATION
  Report Type: 
  Country: None (occurrence: None)
  Receive Date: 20120323
  Receipt Date: 20120312
  Transmission Date: 20120608
  Serious: Yes (Hospitalization)
  Sender: FDA-Public Use
  Company Number: US-ROCHE-1050246

PATIENT
  Age: 73 Year
  Sex: Female

DRUGS (3)
  1. AVASTIN [Suspect]
     Indication: ENDOMETRIAL CANCER
     Dosage: CYCLICAL
     Dates: start: 20111104
  2. IXABEPILONE [Suspect]
     Indication: ENDOMETRIAL CANCER
     Route: 042
     Dates: start: 20111104
  3. CARBOPLATIN [Suspect]
     Indication: ENDOMETRIAL CANCER
     Dosage: CYCLICAL
     Route: 042
     Dates: start: 20111104

REACTIONS (7)
  - BLOOD BILIRUBIN INCREASED [None]
  - WHITE BLOOD CELL COUNT DECREASED [None]
  - VOMITING [None]
  - NAUSEA [None]
  - ABDOMINAL PAIN [None]
  - CONSTIPATION [None]
  - NEUTROPHIL COUNT DECREASED [None]
